FAERS Safety Report 9576258 (Version 1)
Quarter: 2013Q4

REPORT INFORMATION
  Report Type: Spontaneous
  Country: US (occurrence: US)
  Receive Date: 20131001
  Receipt Date: 20131001
  Transmission Date: 20140711
  Serious: No
  Sender: FDA-Public Use
  Company Number: US-AMGEN-USASP2013001594

PATIENT
  Sex: Female
  Weight: 54.42 kg

DRUGS (6)
  1. ENBREL [Suspect]
     Indication: PRODUCT USED FOR UNKNOWN INDICATION
     Dosage: 50 MG, QWK
     Route: 058
  2. HUMIRA [Concomitant]
     Dosage: 40 MG/0.8 UNK
  3. RELAFEN [Concomitant]
     Dosage: 500 MG, UNK
  4. ZOFRAN                             /00955301/ [Concomitant]
     Dosage: 4 MG, UNK
  5. RANITIDINE [Concomitant]
     Dosage: 150 MG, UNK
  6. FLEXERIL                           /00428402/ [Concomitant]
     Dosage: 5 MG, UNK

REACTIONS (1)
  - Drug ineffective [Unknown]
